FAERS Safety Report 10082495 (Version 1)
Quarter: 2014Q2

REPORT INFORMATION
  Report Type: Spontaneous
  Country: US (occurrence: None)
  Receive Date: 20140404
  Receipt Date: 20140404
  Transmission Date: 20141212
  Serious: Yes (Other)
  Sender: FDA-Public Use
  Company Number: 104062

PATIENT
  Age: 45 Year
  Sex: Male
  Weight: 90.72 kg

DRUGS (1)
  1. CAMPHOR, MENTHOL, MENTHYL SALICYLATE [Suspect]
     Indication: PAIN
     Route: 061
     Dates: start: 20140324

REACTIONS (4)
  - Urticaria [None]
  - Lip swelling [None]
  - Hypersensitivity [None]
  - Pain [None]
